FAERS Safety Report 10774580 (Version 1)
Quarter: 2015Q1

REPORT INFORMATION
  Report Type: Spontaneous
  Country: TW (occurrence: TW)
  Receive Date: 20150209
  Receipt Date: 20150209
  Transmission Date: 20150721
  Serious: Yes (Other)
  Sender: FDA-Public Use
  Company Number: TW-AMGEN-TWNSP2015010901

PATIENT
  Age: 49 Year
  Sex: Female

DRUGS (1)
  1. ENBREL [Suspect]
     Active Substance: ETANERCEPT
     Indication: RHEUMATOID ARTHRITIS
     Dosage: 25 MG, BIW
     Route: 058
     Dates: start: 20140128

REACTIONS (5)
  - Pyelonephritis acute [Recovering/Resolving]
  - Pyrexia [Recovering/Resolving]
  - Dizziness [Recovering/Resolving]
  - Dysuria [Recovering/Resolving]
  - Nasopharyngitis [Recovering/Resolving]

NARRATIVE: CASE EVENT DATE: 20150110
